FAERS Safety Report 6335813-2 (Version None)
Quarter: 2009Q3

REPORT INFORMATION
  Report Type: 
  Country: None (occurrence: None)
  Receive Date: 20090828
  Receipt Date: 20090821
  Transmission Date: 20100115
  Serious: Yes (Hospitalization, Other)
  Sender: FDA-Public Use
  Company Number: 09US002541

PATIENT
  Age: 29 Year
  Sex: Female
  Weight: 61.2 kg

DRUGS (4)
  1. DIPHENHYDRAMINE HYDROCHLORIDE 25 MG 431 T [Suspect]
     Indication: SLEEP DISORDER
     Dosage: 50 MG, QD, ORAL
     Route: 048
     Dates: start: 20090711, end: 20090713
  2. NEXIUM [Concomitant]
  3. CELEXA [Concomitant]
  4. KLONOPIN [Concomitant]

REACTIONS (5)
  - HALLUCINATION [None]
  - HALLUCINATION, AUDITORY [None]
  - INITIAL INSOMNIA [None]
  - LIGAMENT RUPTURE [None]
  - PNEUMONIA [None]
